FAERS Safety Report 20940591 (Version 2)
Quarter: 2022Q2

REPORT INFORMATION
  Report Type: Spontaneous
  Country: US (occurrence: US)
  Receive Date: 20220609
  Receipt Date: 20220625
  Transmission Date: 20220721
  Serious: Yes (Death, Life-Threatening, Hospitalization)
  Sender: FDA-Public Use
  Company Number: US-TEVA-2022-US-2043646

PATIENT
  Age: 51 Year
  Sex: Male

DRUGS (5)
  1. METHYLPREDNISOLONE [Suspect]
     Active Substance: METHYLPREDNISOLONE
     Indication: Thrombotic thrombocytopenic purpura
     Dosage: DOSE- 50MG
     Route: 042
  2. METHYLPREDNISOLONE [Suspect]
     Active Substance: METHYLPREDNISOLONE
     Dosage: PRIOR TO PLASMAPHERESIS
     Route: 042
  3. IPILIMUMAB [Suspect]
     Active Substance: IPILIMUMAB
     Indication: Metastatic malignant melanoma
     Dosage: SINGLE DOSE GIVEN
     Route: 042
  4. NIVOLUMAB [Suspect]
     Active Substance: NIVOLUMAB
     Indication: Metastatic malignant melanoma
     Dosage: SINGLE DOSE GIVEN
     Route: 042
  5. NIVOLUMAB [Suspect]
     Active Substance: NIVOLUMAB
     Dosage: MAINTENANCE DOSE
     Route: 042

REACTIONS (7)
  - Thrombotic thrombocytopenic purpura [Fatal]
  - Microangiopathic haemolytic anaemia [Fatal]
  - Acute kidney injury [Fatal]
  - Cerebral infarction [Fatal]
  - Generalised tonic-clonic seizure [Fatal]
  - Cardio-respiratory arrest [Fatal]
  - Drug ineffective [Unknown]
